FAERS Safety Report 8267505-7 (Version None)
Quarter: 2012Q2

REPORT INFORMATION
  Report Type: 
  Country: None (occurrence: None)
  Receive Date: 20120409
  Receipt Date: 20120329
  Transmission Date: 20120825
  Serious: Yes (Hospitalization)
  Sender: FDA-Public Use
  Company Number: CA-JNJFOC-20120315256

PATIENT
  Sex: Male
  Weight: 69.4 kg

DRUGS (7)
  1. ISONIAZID [Concomitant]
     Route: 065
  2. AMIKACIN [Suspect]
     Indication: TUBERCULOSIS
     Route: 065
  3. REMICADE [Suspect]
     Indication: COLITIS ULCERATIVE
     Route: 042
     Dates: start: 20110601, end: 20111201
  4. ETHAMBUTOL HYDROCHLORIDE [Suspect]
     Indication: TUBERCULOSIS
     Route: 065
  5. RIFAMPIN [Suspect]
     Indication: TUBERCULOSIS
     Route: 065
  6. PYRAZINAMIDE [Concomitant]
     Route: 065
  7. AVELOX [Concomitant]
     Route: 065

REACTIONS (2)
  - TUBERCULOSIS [None]
  - ADVERSE EVENT [None]
